FAERS Safety Report 22187257 (Version 2)
Quarter: 2023Q2

REPORT INFORMATION
  Report Type: Spontaneous
  Country: JP (occurrence: JP)
  Receive Date: 20230407
  Receipt Date: 20230502
  Transmission Date: 20230722
  Serious: Yes (Other)
  Sender: FDA-Public Use
  Company Number: JP-BoehringerIngelheim-2023-BI-230202

PATIENT
  Age: 64 Year
  Sex: Male

DRUGS (2)
  1. GILOTRIF [Suspect]
     Active Substance: AFATINIB
     Indication: Lung adenocarcinoma stage IV
     Route: 065
     Dates: start: 20150525, end: 20160215
  2. GILOTRIF [Suspect]
     Active Substance: AFATINIB
     Indication: EGFR gene mutation
     Route: 065
     Dates: start: 20160216, end: 20211120

REACTIONS (7)
  - Disease progression [Unknown]
  - Malignant pleural effusion [Recovered/Resolved]
  - Rash [Recovered/Resolved]
  - Bronchiectasis [Recovered/Resolved]
  - Lung opacity [Recovered/Resolved]
  - Emphysema [Unknown]
  - Therapy partial responder [Unknown]

NARRATIVE: CASE EVENT DATE: 20150606
